FAERS Safety Report 6903075-0 (Version None)
Quarter: 2010Q3

REPORT INFORMATION
  Report Type: 
  Country: None (occurrence: None)
  Receive Date: 20100803
  Receipt Date: 20080911
  Transmission Date: 20110219
  Serious: No
  Sender: FDA-Public Use
  Company Number: US-PFIZER INC-2008068986

PATIENT
  Sex: Female
  Weight: 57.61 kg

DRUGS (3)
  1. LYRICA [Suspect]
     Indication: FACIAL NEURALGIA
     Dates: start: 20060101
  2. NEURONTIN [Suspect]
     Indication: FACIAL NEURALGIA
     Dates: start: 20050101
  3. DOXYCYCLINE [Concomitant]

REACTIONS (6)
  - ALOPECIA [None]
  - BACK PAIN [None]
  - BONE PAIN [None]
  - CRYING [None]
  - DRUG INEFFECTIVE [None]
  - PANIC REACTION [None]
